FAERS Safety Report 4311057-0 (Version None)
Quarter: 2004Q1

REPORT INFORMATION
  Report Type: 
  Country: None (occurrence: None)
  Receive Date: 20040302
  Receipt Date: 20040223
  Transmission Date: 20041129
  Serious: Yes (Hospitalization)
  Sender: FDA-Public Use
  Company Number: US-JNJFOC-20040205840

PATIENT
  Age: 62 Year
  Sex: Female

DRUGS (9)
  1. INFLIXIMAB (INFLIXIMAB, RECOMBINANT) LYOPHILIZED POWDER [Suspect]
     Indication: RHEUMATOID ARTHRITIS
     Dosage: INTRAVENOUS
     Route: 042
     Dates: start: 20010910
  2. TYLENOL [Concomitant]
  3. PREDNISONE [Concomitant]
  4. PROTONIX [Concomitant]
  5. IBUPROFEN [Concomitant]
  6. CALTRATE (CALCIUM CARBONATE) [Concomitant]
  7. B-12 (CYANOCOBALAMIN) [Concomitant]
  8. MULTIVITAMIN (MULTIVITAMINS) [Concomitant]
  9. TRIAMTERENE (TRIAMTERENE) [Concomitant]

REACTIONS (5)
  - BACTERIAL INFECTION [None]
  - PLEURAL EFFUSION [None]
  - PYELONEPHRITIS [None]
  - TACHYCARDIA [None]
  - UROSEPSIS [None]
